FAERS Safety Report 10100408 (Version 1)
Quarter: 2014Q2

REPORT INFORMATION
  Report Type: Spontaneous
  Country: GB (occurrence: GB)
  Receive Date: 20140423
  Receipt Date: 20140423
  Transmission Date: 20141212
  Serious: Yes (Other)
  Sender: FDA-Public Use
  Company Number: GB-TEVA-477144ISR

PATIENT
  Age: 69 Year
  Sex: Female
  Weight: 112.3 kg

DRUGS (2)
  1. DILTIAZEM [Suspect]
  2. STATINS [Interacting]
     Route: 048

REACTIONS (4)
  - Drug interaction [Unknown]
  - Muscular weakness [Unknown]
  - Sialoadenitis [Unknown]
  - Hearing impaired [Unknown]
